FAERS Safety Report 18066602 (Version 1)
Quarter: 2020Q3

REPORT INFORMATION
  Report Type: Spontaneous
  Country: NO (occurrence: NO)
  Receive Date: 20200724
  Receipt Date: 20200724
  Transmission Date: 20201103
  Serious: Yes (Hospitalization)
  Sender: FDA-Public Use
  Company Number: NO-PFIZER INC-2020260366

PATIENT
  Age: 28 Year
  Sex: Female

DRUGS (2)
  1. REMSIMA [Suspect]
     Active Substance: INFLIXIMAB
     Indication: CROHN^S DISEASE
     Dosage: 300 MG, 8 UNITS IN A WEEK (VARIYING DOSE, USUALLY 300 MG EVERY EIGHT WEEK. TOTAL DOSE 60 UNITS)
     Route: 042
     Dates: start: 20170113, end: 20200121
  2. ZESSLY [Suspect]
     Active Substance: INFLIXIMAB
     Indication: CROHN^S DISEASE
     Dosage: UNK
     Route: 042
     Dates: start: 20200317, end: 20200317

REACTIONS (3)
  - Headache [Recovered/Resolved]
  - Demyelination [Recovered/Resolved]
  - Hypoaesthesia [Recovered/Resolved]

NARRATIVE: CASE EVENT DATE: 20200504
